FAERS Safety Report 4487877-9 (Version None)
Quarter: 2004Q4

REPORT INFORMATION
  Report Type: 
  Country: None (occurrence: None)
  Receive Date: 20041025
  Receipt Date: 20041012
  Transmission Date: 20050328
  Serious: Yes (Hospitalization)
  Sender: FDA-Public Use
  Company Number: 2004076844

PATIENT
  Age: 49 Year
  Sex: Male

DRUGS (1)
  1. BENADRYL [Suspect]
     Indication: ILL-DEFINED DISORDER
     Dosage: 400 MG (100 MG 4 IN 1 D)

REACTIONS (4)
  - BODY TEMPERATURE INCREASED [None]
  - DIZZINESS [None]
  - TREMOR [None]
  - WHITE BLOOD CELL COUNT INCREASED [None]
